FAERS Safety Report 4360588-6 (Version None)
Quarter: 2004Q2

REPORT INFORMATION
  Report Type: 
  Country: None (occurrence: None)
  Receive Date: 20040519
  Receipt Date: 20040507
  Transmission Date: 20050107
  Serious: Yes (Death, Hospitalization)
  Sender: FDA-Public Use
  Company Number: ES-BRISTOL-MYERS SQUIBB COMPANY-12582011

PATIENT
  Age: 34 Year
  Sex: Female

DRUGS (9)
  1. DIDANOSINE [Interacting]
     Indication: HIV INFECTION
     Route: 048
     Dates: start: 20010101
  2. STAVUDINE [Suspect]
     Indication: HIV INFECTION
     Route: 048
     Dates: start: 20010101
  3. RIBAVIRIN [Interacting]
     Indication: HEPATITIS C
     Route: 048
     Dates: start: 20001101, end: 20010401
  4. INTRON A [Suspect]
     Indication: HEPATITIS C
     Dosage: DOSAGE FORM = MU
     Route: 048
     Dates: start: 20001101, end: 20010401
  5. ABACAVIR [Suspect]
     Indication: HIV INFECTION
     Route: 048
     Dates: start: 20010101
  6. GABAPENTIN [Concomitant]
     Indication: CONVULSION
     Route: 048
     Dates: start: 19991201
  7. RIVOTRIL [Concomitant]
     Indication: PARKINSONISM
     Route: 048
     Dates: start: 20000201
  8. CO-TRIMOXAZOLE [Concomitant]
     Indication: PROPHYLAXIS
     Route: 048
     Dates: start: 20000701
  9. AZITHROMYCIN [Concomitant]
     Indication: MYCOBACTERIUM AVIUM COMPLEX INFECTION
     Route: 048
     Dates: start: 20000601

REACTIONS (4)
  - COMA [None]
  - DRUG INTERACTION [None]
  - LACTIC ACIDOSIS [None]
  - PANCREATITIS [None]
